FAERS Safety Report 7701797-5 (Version None)
Quarter: 2011Q3

REPORT INFORMATION
  Report Type: 
  Country: None (occurrence: None)
  Receive Date: 20110822
  Receipt Date: 20110721
  Transmission Date: 20111222
  Serious: No
  Sender: FDA-Public Use
  Company Number: US-BAYER-2011-065387

PATIENT

DRUGS (2)
  1. MARIJUANA [Concomitant]
     Route: 048
  2. ALEVE (CAPLET) [Suspect]

REACTIONS (2)
  - NO ADVERSE EVENT [None]
  - DRUG INEFFECTIVE [None]
